FAERS Safety Report 13552772 (Version 2)
Quarter: 2017Q2

REPORT INFORMATION
  Report Type: Report from Study
  Country: US (occurrence: US)
  Receive Date: 20170517
  Receipt Date: 20170627
  Transmission Date: 20170830
  Serious: Yes (Hospitalization, Other)
  Sender: FDA-Public Use
  Company Number: US-GILEAD-2017-0270726

PATIENT
  Age: 66 Year
  Sex: Female

DRUGS (2)
  1. AMBRISENTAN [Suspect]
     Active Substance: AMBRISENTAN
     Dosage: 5 MG, UNK
     Route: 065
  2. AMBRISENTAN [Suspect]
     Active Substance: AMBRISENTAN
     Indication: PRODUCT USED FOR UNKNOWN INDICATION
     Dosage: 10 MG, UNK
     Route: 065
     Dates: start: 20120921

REACTIONS (10)
  - Pyrexia [Unknown]
  - Pneumonia [Unknown]
  - Fatigue [Unknown]
  - Abasia [Unknown]
  - Eating disorder [Unknown]
  - Drug dose omission [Unknown]
  - Dysstasia [Unknown]
  - Hypotension [Unknown]
  - Oxygen saturation decreased [Unknown]
  - Malaise [Unknown]
